FAERS Safety Report 10367545 (Version 1)
Quarter: 2014Q3

REPORT INFORMATION
  Report Type: Spontaneous
  Country: US (occurrence: None)
  Receive Date: 20140806
  Receipt Date: 20140806
  Transmission Date: 20150326
  Serious: Yes (Disabling, Other)
  Sender: FDA-Public Use
  Company Number: None

PATIENT
  Age: 65 Year
  Sex: Female
  Weight: 79.38 kg

DRUGS (8)
  1. TYLENOL [Concomitant]
     Active Substance: ACETAMINOPHEN
  2. OMEPRAZOLE. [Concomitant]
     Active Substance: OMEPRAZOLE
  3. EPIPEN [Concomitant]
     Active Substance: EPINEPHRINE
  4. CLARITIN [Concomitant]
     Active Substance: LORATADINE
  5. COATED ASPIRIN [Concomitant]
  6. COD LIVER OIL [Concomitant]
     Active Substance: COD LIVER OIL
  7. TROSPIUM CL MFG. GLENMARK [Suspect]
     Active Substance: TROSPIUM CHLORIDE
     Indication: BLADDER PROLAPSE
     Route: 048
     Dates: start: 20140625, end: 20140627
  8. DIGESTIVE ADVANTAGE [Concomitant]

REACTIONS (10)
  - Headache [None]
  - Chromaturia [None]
  - Abdominal discomfort [None]
  - Heart rate increased [None]
  - Constipation [None]
  - Dry mouth [None]
  - Dizziness [None]
  - Feeling abnormal [None]
  - Myalgia [None]
  - Somnolence [None]

NARRATIVE: CASE EVENT DATE: 20140625
